FAERS Safety Report 5753491-8 (Version None)
Quarter: 2008Q2

REPORT INFORMATION
  Report Type: 
  Country: None (occurrence: None)
  Receive Date: 20080530
  Receipt Date: 20080515
  Transmission Date: 20081010
  Serious: Yes (Other)
  Sender: FDA-Public Use
  Company Number: PHHY2008JP08079

PATIENT

DRUGS (5)
  1. NEORAL [Suspect]
     Indication: INTERSTITIAL LUNG DISEASE
     Route: 048
  2. NEORAL [Suspect]
     Dosage: 100 MG/DAY
     Route: 048
  3. BREDININ [Concomitant]
     Indication: INTERSTITIAL LUNG DISEASE
     Route: 048
  4. PREDONINE [Concomitant]
     Indication: INTERSTITIAL LUNG DISEASE
     Route: 048
  5. PREDONINE-1 [Concomitant]
     Indication: INTERSTITIAL LUNG DISEASE
     Route: 042

REACTIONS (1)
  - INTRA-ABDOMINAL HAEMORRHAGE [None]
